FAERS Safety Report 9969250 (Version 1)
Quarter: 2014Q1

REPORT INFORMATION
  Report Type: Spontaneous
  Country: US (occurrence: US)
  Receive Date: 20140306
  Receipt Date: 20140306
  Transmission Date: 20141002
  Serious: No
  Sender: FDA-Public Use
  Company Number: US-BIOGENIDEC-2014BI018147

PATIENT
  Age: 49 Year
  Sex: Male

DRUGS (7)
  1. TECFIDERA [Suspect]
     Indication: MULTIPLE SCLEROSIS
     Route: 048
  2. AMITRIPTYLINE HCL [Concomitant]
  3. CELEBREX [Concomitant]
  4. HYDROCODONE-ACETAMINOPHEN [Concomitant]
  5. LISINOPRIL [Concomitant]
  6. OMEPRAZOLE [Concomitant]
  7. ZANAFLEX [Concomitant]

REACTIONS (3)
  - Headache [Unknown]
  - Rhinitis [Unknown]
  - Flushing [Unknown]
